FAERS Safety Report 8034074-6 (Version None)
Quarter: 2012Q1

REPORT INFORMATION
  Report Type: 
  Country: None (occurrence: None)
  Receive Date: 20120110
  Receipt Date: 20120102
  Transmission Date: 20120608
  Serious: Yes (Other)
  Sender: FDA-Public Use
  Company Number: BR-B.I. PHARMACEUTICALS,INC./RIDGEFIELD-2012-EU-00028GD

PATIENT
  Age: 31 Year
  Sex: Female

DRUGS (6)
  1. LAMIVUDINE [Suspect]
     Indication: HIV INFECTION
     Dosage: 150 MG
  2. ZIDOVUDINE [Suspect]
     Indication: HIV INFECTION
     Dosage: 300 MG
  3. STAVUDINE [Suspect]
     Indication: HIV INFECTION
  4. KETOCONAZOLE [Concomitant]
     Indication: ORAL CANDIDIASIS
     Dosage: 400 MG
  5. NEVIRAPINE [Suspect]
     Indication: HIV INFECTION
     Dosage: 400 MG
  6. FLUOXETINE [Concomitant]
     Indication: DEPRESSION
     Dosage: 20 MG

REACTIONS (1)
  - LIPOATROPHY [None]
